FAERS Safety Report 25119124 (Version 1)
Quarter: 2025Q1

REPORT INFORMATION
  Report Type: Spontaneous
  Country: US (occurrence: US)
  Receive Date: 20250325
  Receipt Date: 20250325
  Transmission Date: 20250409
  Serious: No
  Sender: SANOFI AVENTIS
  Company Number: US-SA-2025SA085761

PATIENT
  Age: 31 Year
  Sex: Male

DRUGS (1)
  1. DUPIXENT [Suspect]
     Active Substance: DUPILUMAB
     Route: 065

REACTIONS (4)
  - Lip swelling [Unknown]
  - Paraesthesia [Unknown]
  - Scab [Unknown]
  - Cheilitis [Unknown]
